FAERS Safety Report 25269461 (Version 1)
Quarter: 2025Q2

REPORT INFORMATION
  Report Type: Spontaneous
  Country: CN (occurrence: CN)
  Receive Date: 20250505
  Receipt Date: 20250505
  Transmission Date: 20250716
  Serious: Yes (Other)
  Sender: FRESENIUS KABI
  Company Number: CN-FreseniusKabi-FK202506456

PATIENT
  Age: 64 Year
  Sex: Female

DRUGS (2)
  1. SMOFLIPID [Suspect]
     Active Substance: FISH OIL\MEDIUM-CHAIN TRIGLYCERIDES\OLIVE OIL\SOYBEAN OIL
     Indication: Lymphoma
     Dosage: DOSAGE FORM: INJECTION
     Route: 041
     Dates: start: 20250416, end: 20250420
  2. AMINO ACIDS, SOURCE UNSPECIFIED [Suspect]
     Active Substance: AMINO ACIDS, SOURCE UNSPECIFIED
     Indication: Lymphoma
     Dosage: DFOSAGE FORM: INJECTION
     Route: 041
     Dates: start: 20250416, end: 20250420

REACTIONS (6)
  - Rash erythematous [Recovering/Resolving]
  - Rash pruritic [Recovering/Resolving]
  - Blood pressure decreased [Recovering/Resolving]
  - Dysphoria [Recovering/Resolving]
  - Dizziness [Recovering/Resolving]
  - Anaphylactic shock [Recovering/Resolving]

NARRATIVE: CASE EVENT DATE: 20250420
